FAERS Safety Report 4312362-4 (Version None)
Quarter: 2004Q1

REPORT INFORMATION
  Report Type: 
  Country: None (occurrence: None)
  Receive Date: 20040303
  Receipt Date: 20040220
  Transmission Date: 20041129
  Serious: Yes (Other)
  Sender: FDA-Public Use
  Company Number: US067395

PATIENT
  Age: 62 Year
  Sex: Female

DRUGS (1)
  1. ENBREL [Suspect]
     Indication: DRUG USE FOR UNKNOWN INDICATION
     Dosage: 2 IN 1 WEEKS, SC
     Route: 058
     Dates: start: 19990101

REACTIONS (1)
  - LYMPHOPLASMACYTOID LYMPHOMA/IMMUNOCYTOMA [None]
